FAERS Safety Report 4338619-9 (Version None)
Quarter: 2004Q2

REPORT INFORMATION
  Report Type: 
  Country: None (occurrence: None)
  Receive Date: 20040409
  Receipt Date: 20040401
  Transmission Date: 20050107
  Serious: Yes (Death, Hospitalization)
  Sender: FDA-Public Use
  Company Number: US061524

PATIENT
  Age: 74 Year
  Sex: Female

DRUGS (6)
  1. ENBREL [Suspect]
     Indication: RHEUMATOID ARTHRITIS
     Dosage: 25 MG, TWICE WEEKLY,  SC
     Route: 058
     Dates: start: 20021030, end: 20031130
  2. METHOTREXATE [Suspect]
     Dosage: 5 MG, WEEKLY, PO
     Route: 048
     Dates: start: 20011128, end: 20020506
  3. PREDNISONE [Concomitant]
  4. CONJUGATED ESTROGEN [Concomitant]
  5. ATORVASTATIN CALCIUM [Concomitant]
  6. LANSOPRAZOLE [Concomitant]

REACTIONS (12)
  - ABDOMINAL PAIN [None]
  - ADRENOCORTICAL INSUFFICIENCY ACUTE [None]
  - BRADYCARDIA [None]
  - CARDIAC FAILURE CONGESTIVE [None]
  - CARDIO-RESPIRATORY ARREST [None]
  - COMA [None]
  - IMMUNOSUPPRESSION [None]
  - INFECTION [None]
  - MYOCARDIAL INFARCTION [None]
  - PNEUMONIA [None]
  - PULMONARY OEDEMA [None]
  - RESPIRATORY FAILURE [None]
